FAERS Safety Report 6570643-8 (Version None)
Quarter: 2010Q1

REPORT INFORMATION
  Report Type: 
  Country: None (occurrence: None)
  Receive Date: 20100204
  Receipt Date: 20100201
  Transmission Date: 20100710
  Serious: Yes (Hospitalization)
  Sender: FDA-Public Use
  Company Number: DE-PFIZER INC-2010012883

PATIENT
  Sex: Female

DRUGS (5)
  1. LYRICA [Suspect]
     Dosage: UNK
     Dates: start: 20080101
  2. COMBAREN [Concomitant]
  3. TRANCOPAL [Concomitant]
  4. PETHIDINE [Concomitant]
  5. OXYCODONE [Concomitant]

REACTIONS (1)
  - CONVULSION [None]
